FAERS Safety Report 12305828 (Version 4)
Quarter: 2016Q2

REPORT INFORMATION
  Report Type: Spontaneous
  Country: JP (occurrence: JP)
  Receive Date: 20160426
  Receipt Date: 20160512
  Transmission Date: 20160815
  Serious: Yes (Hospitalization, Other)
  Sender: FDA-Public Use
  Company Number: JP-PFIZER INC-2016220247

PATIENT
  Age: 73 Year
  Sex: Female

DRUGS (1)
  1. LYRICA [Suspect]
     Active Substance: PREGABALIN
     Indication: NEURALGIA
     Dosage: 75 MG, 2X/DAY
     Route: 048
     Dates: start: 20150608, end: 20150610

REACTIONS (5)
  - Dysstasia [Recovering/Resolving]
  - Somnolence [Unknown]
  - Condition aggravated [Recovering/Resolving]
  - Apathy [Recovered/Resolved]
  - Paresis [Recovering/Resolving]

NARRATIVE: CASE EVENT DATE: 20150610
